FAERS Safety Report 10012670 (Version 3)
Quarter: 2014Q1

REPORT INFORMATION
  Report Type: Report from Study
  Country: US (occurrence: US)
  Receive Date: 20140314
  Receipt Date: 20140326
  Transmission Date: 20141002
  Serious: Yes (Other)
  Sender: FDA-Public Use
  Company Number: PHEH2014US004279

PATIENT
  Sex: Female

DRUGS (1)
  1. DIOVAN [Suspect]
     Dosage: 160 MG, QD
     Route: 048

REACTIONS (9)
  - Heart valve incompetence [Unknown]
  - Gait disturbance [Unknown]
  - Movement disorder [Unknown]
  - Cardiac disorder [Unknown]
  - Arthritis [Unknown]
  - Pain [Unknown]
  - Rotator cuff syndrome [Unknown]
  - Blood pressure inadequately controlled [Unknown]
  - Oedema peripheral [Unknown]
